FAERS Safety Report 14918786 (Version 4)
Quarter: 2018Q4

REPORT INFORMATION
  Report Type: Spontaneous
  Country: US (occurrence: US)
  Receive Date: 20180521
  Receipt Date: 20181126
  Transmission Date: 20190204
  Serious: No
  Sender: FDA-Public Use
  Company Number: US-PFIZER INC-2018204988

PATIENT
  Age: 70 Year
  Sex: Female

DRUGS (4)
  1. METHOTREXATE. [Concomitant]
     Active Substance: METHOTREXATE
     Indication: RHEUMATOID ARTHRITIS
     Dosage: 0.6 ML, WEEKLY
  2. XELJANZ XR [Suspect]
     Active Substance: TOFACITINIB CITRATE
     Indication: FIBROMYALGIA
  3. XELJANZ XR [Suspect]
     Active Substance: TOFACITINIB CITRATE
     Indication: PAIN
  4. XELJANZ XR [Suspect]
     Active Substance: TOFACITINIB CITRATE
     Indication: RHEUMATOID ARTHRITIS
     Dosage: 11 MG, DAILY
     Route: 048
     Dates: start: 201806, end: 20181104

REACTIONS (23)
  - Dysphonia [Unknown]
  - Cough [Unknown]
  - Blood glucose increased [Unknown]
  - Pain in jaw [Unknown]
  - Abdominal pain upper [Recovering/Resolving]
  - Swelling face [Unknown]
  - Tongue blistering [Not Recovered/Not Resolved]
  - Dyspnoea [Unknown]
  - Drug ineffective [Unknown]
  - Fatigue [Unknown]
  - Decreased appetite [Unknown]
  - Pollakiuria [Not Recovered/Not Resolved]
  - Rash pruritic [Unknown]
  - Chest pain [Unknown]
  - Rhinorrhoea [Unknown]
  - Dyspepsia [Unknown]
  - Headache [Not Recovered/Not Resolved]
  - Weight decreased [Unknown]
  - Sneezing [Unknown]
  - Synovial cyst [Unknown]
  - Mouth cyst [Not Recovered/Not Resolved]
  - Oropharyngeal pain [Unknown]
  - Insomnia [Unknown]

NARRATIVE: CASE EVENT DATE: 2018
